FAERS Safety Report 4919879-X (Version None)
Quarter: 2006Q1

REPORT INFORMATION
  Report Type: 
  Country: None (occurrence: None)
  Receive Date: 20060223
  Receipt Date: 20060215
  Transmission Date: 20060701
  Serious: Yes (Hospitalization)
  Sender: FDA-Public Use
  Company Number: US-JNJFOC-20060204556

PATIENT
  Sex: Female
  Weight: 117.94 kg

DRUGS (8)
  1. DURAGESIC-100 [Suspect]
     Route: 062
  2. DURAGESIC-100 [Suspect]
     Route: 062
  3. DURAGESIC-100 [Suspect]
     Route: 062
  4. DURAGESIC-100 [Suspect]
     Route: 062
  5. ZANAFLEX [Concomitant]
     Route: 048
  6. ALLEGRA [Concomitant]
     Route: 048
  7. PREMARIN [Concomitant]
     Indication: HORMONE REPLACEMENT THERAPY
     Route: 048
  8. PAXIL [Concomitant]
     Indication: DEPRESSION
     Route: 048

REACTIONS (8)
  - ANXIETY [None]
  - BACK PAIN [None]
  - GASTROOESOPHAGEAL REFLUX DISEASE [None]
  - HYPERCHLORHYDRIA [None]
  - OPEN WOUND [None]
  - SPINAL COLUMN STENOSIS [None]
  - STREPTOCOCCAL INFECTION [None]
  - WOUND INFECTION STAPHYLOCOCCAL [None]
